FAERS Safety Report 8490503-5 (Version None)
Quarter: 2012Q3

REPORT INFORMATION
  Report Type: 
  Country: None (occurrence: None)
  Receive Date: 20120705
  Receipt Date: 20120629
  Transmission Date: 20120928
  Serious: Yes (Hospitalization)
  Sender: FDA-Public Use
  Company Number: SE-TEVA-346174ISR

PATIENT
  Sex: Female

DRUGS (4)
  1. CYCLOPHOSPHAMIDE [Suspect]
  2. VINCRISTINE [Suspect]
  3. DOXORUBICIN HCL [Suspect]
  4. NEULASTA [Suspect]
     Indication: LYMPHOMA
     Dosage: 6 MILLIGRAM;
     Route: 058
     Dates: start: 20120507

REACTIONS (1)
  - CEREBRAL INFARCTION [None]
